FAERS Safety Report 6533309-6 (Version None)
Quarter: 2010Q1

REPORT INFORMATION
  Report Type: 
  Country: None (occurrence: None)
  Receive Date: 20100111
  Receipt Date: 20100108
  Transmission Date: 20100710
  Serious: Yes (Congenital Anomaly)
  Sender: FDA-Public Use
  Company Number: A0680455A

PATIENT
  Sex: Male

DRUGS (1)
  1. PAXIL [Suspect]
     Indication: DEPRESSION
     Dosage: 20MG UNKNOWN

REACTIONS (8)
  - CONGENITAL ANOMALY [None]
  - CONGENITAL AORTIC ATRESIA [None]
  - DRUG EXPOSURE DURING PREGNANCY [None]
  - HEART DISEASE CONGENITAL [None]
  - HYPOPLASTIC LEFT HEART SYNDROME [None]
  - LUNG DISORDER [None]
  - TRANSPOSITION OF THE GREAT VESSELS [None]
  - WOLFF-PARKINSON-WHITE SYNDROME [None]
